FAERS Safety Report 4423060-0 (Version None)
Quarter: 2004Q3

REPORT INFORMATION
  Report Type: 
  Country: None (occurrence: None)
  Receive Date: 20040806
  Receipt Date: 20040721
  Transmission Date: 20050211
  Serious: Yes (Other)
  Sender: FDA-Public Use
  Company Number: USA040773311

PATIENT
  Age: 73 Year
  Sex: Female

DRUGS (3)
  1. EVISTA [Suspect]
     Indication: OSTEOPOROSIS PROPHYLAXIS
     Dates: start: 19990101
  2. SYNTHROID (LEVOTHYROXINE SOIDUM) [Concomitant]
  3. METOPROLOL [Concomitant]

REACTIONS (1)
  - MASTECTOMY [None]
